FAERS Safety Report 9383568 (Version 1)
Quarter: 2013Q3

REPORT INFORMATION
  Report Type: Spontaneous
  Country: CA (occurrence: CA)
  Receive Date: 20130704
  Receipt Date: 20130704
  Transmission Date: 20140515
  Serious: Yes (Other)
  Sender: FDA-Public Use
  Company Number: CA-AMGEN-CANSP2013046249

PATIENT
  Age: 77 Year
  Sex: Female

DRUGS (1)
  1. XGEVA [Suspect]
     Indication: METASTATIC RENAL CELL CARCINOMA
     Dosage: 120 MG, Q4WK
     Route: 058
     Dates: start: 201301

REACTIONS (1)
  - Spinal column stenosis [Unknown]
